FAERS Safety Report 21994687 (Version 7)
Quarter: 2024Q2

REPORT INFORMATION
  Report Type: Spontaneous
  Country: US (occurrence: US)
  Receive Date: 20230215
  Receipt Date: 20240620
  Transmission Date: 20240716
  Serious: Yes (Other)
  Sender: FDA-Public Use
  Company Number: US-PFIZER INC-202300067417

PATIENT
  Age: 72 Year
  Sex: Female
  Weight: 79.38 kg

DRUGS (8)
  1. VYNDAMAX [Suspect]
     Active Substance: TAFAMIDIS
     Indication: Cardiac amyloidosis
     Dosage: 61 MG, 1X/DAY (1 CAPSULE BY MOUTH ONCE A DAY IN THE MORNING)
     Route: 048
     Dates: start: 202208
  2. ENTRESTO [Concomitant]
     Active Substance: SACUBITRIL\VALSARTAN
     Dosage: UNK
  3. ELIQUIS [Concomitant]
     Active Substance: APIXABAN
     Dosage: UNK
  4. JARDIANCE [Concomitant]
     Active Substance: EMPAGLIFLOZIN
     Dosage: UNK
  5. LOMOTIL [Concomitant]
     Active Substance: ATROPINE SULFATE\DIPHENOXYLATE HYDROCHLORIDE
     Indication: Diarrhoea
     Dosage: 1 TABLET BY MOUTH 4 (FOUR) TIMES A DAY AS NEEDED
     Route: 048
  6. NEURONTIN [Concomitant]
     Active Substance: GABAPENTIN
     Dosage: TAKE 1 CAPSULE FOUR TIMES A DAY
  7. XANAX [Concomitant]
     Active Substance: ALPRAZOLAM
     Indication: Anxiety
     Dosage: TAKE 1 TABLET (0.5 MG TOTAL) BY MOUTH 3 (THREE) TIMES A DAY AS NEEDED FOR ANXIETY. MAX DAILY: 1.5 MG
     Route: 048
  8. CLINDAMYCIN HYDROCHLORIDE [Concomitant]
     Active Substance: CLINDAMYCIN HYDROCHLORIDE
     Indication: Dental care
     Dosage: DENTAL APPT AS NEEDED

REACTIONS (3)
  - Knee operation [Unknown]
  - Product dose omission issue [Unknown]
  - Illness [Unknown]
